FAERS Safety Report 15877918 (Version 2)
Quarter: 2019Q1

REPORT INFORMATION
  Report Type: Spontaneous
  Country: US (occurrence: US)
  Receive Date: 20190128
  Receipt Date: 20190131
  Transmission Date: 20190417
  Serious: Yes (Hospitalization)
  Sender: FDA-Public Use
  Company Number: US-UNITED THERAPEUTICS-UNT-2019-001407

PATIENT
  Sex: Female
  Weight: 84.81 kg

DRUGS (1)
  1. REMODULIN [Suspect]
     Active Substance: TREPROSTINIL
     Indication: PULMONARY ARTERIAL HYPERTENSION
     Dosage: 0.024 ?G/KG, CONTINUING
     Route: 058
     Dates: start: 20180906

REACTIONS (4)
  - Hypotension [Recovering/Resolving]
  - Nausea [Recovering/Resolving]
  - Device dislocation [Unknown]
  - Dizziness [Recovering/Resolving]
